FAERS Safety Report 26035410 (Version 1)
Quarter: 2025Q4

REPORT INFORMATION
  Report Type: Spontaneous
  Country: BR (occurrence: BR)
  Receive Date: 20251112
  Receipt Date: 20251112
  Transmission Date: 20260117
  Serious: Yes (Other)
  Sender: NOVARTIS
  Company Number: BR-002147023-NVSC2025BR162759

PATIENT
  Age: 57 Year
  Sex: Female
  Weight: 50 kg

DRUGS (3)
  1. INCLISIRAN [Suspect]
     Active Substance: INCLISIRAN
     Indication: Product used for unknown indication
     Dosage: 284 MG/1.5ML
     Route: 058
  2. INCLISIRAN [Suspect]
     Active Substance: INCLISIRAN
     Dosage: 284 MG/1.5ML
     Route: 058
  3. EZETIMIBE\ROSUVASTATIN CALCIUM [Concomitant]
     Active Substance: EZETIMIBE\ROSUVASTATIN CALCIUM
     Indication: Product used for unknown indication
     Dosage: 50 MG, QD (40MG + 10MG 1 TABLET AFTER DINNER)
     Route: 048

REACTIONS (3)
  - Lipoprotein increased [Unknown]
  - Drug effect less than expected [Unknown]
  - Drug resistance [Unknown]

NARRATIVE: CASE EVENT DATE: 20250722
